FAERS Safety Report 6343908-2 (Version None)
Quarter: 2009Q3

REPORT INFORMATION
  Report Type: 
  Country: None (occurrence: None)
  Receive Date: 20090908
  Receipt Date: 20090826
  Transmission Date: 20100115
  Serious: Yes (Hospitalization)
  Sender: FDA-Public Use
  Company Number: JP-PFIZER INC-2009250360

PATIENT
  Age: 69 Year

DRUGS (7)
  1. ALDACTONE [Suspect]
     Indication: CARDIAC FAILURE
     Dosage: UNK
     Route: 048
     Dates: start: 20090413, end: 20090520
  2. ALDACTONE [Suspect]
     Indication: MITRAL VALVE INCOMPETENCE
  3. LASIX [Concomitant]
     Dosage: UNK
     Route: 048
     Dates: start: 20090413, end: 20090520
  4. WARFARIN [Concomitant]
     Route: 048
     Dates: start: 20090413, end: 20090703
  5. WARFARIN [Concomitant]
     Dosage: UNK
     Dates: start: 20090522
  6. PARIET [Concomitant]
     Dosage: UNK
     Route: 048
     Dates: start: 20090416, end: 20090520
  7. MAGNESIUM OXIDE [Concomitant]
     Route: 048
     Dates: start: 20090421, end: 20090703

REACTIONS (6)
  - ACUTE GENERALISED EXANTHEMATOUS PUSTULOSIS [None]
  - ANAEMIA [None]
  - CARDIAC FAILURE [None]
  - CONDITION AGGRAVATED [None]
  - LYMPHOCYTE STIMULATION TEST POSITIVE [None]
  - PNEUMONIA ASPIRATION [None]
